FAERS Safety Report 6218307-4 (Version None)
Quarter: 2009Q2

REPORT INFORMATION
  Report Type: 
  Country: None (occurrence: None)
  Receive Date: 20090608
  Receipt Date: 20090529
  Transmission Date: 20091009
  Serious: Yes (Hospitalization)
  Sender: FDA-Public Use
  Company Number: US-JNJFOC-20090600477

PATIENT
  Age: 33 Year
  Sex: Male
  Weight: 99.79 kg

DRUGS (2)
  1. TYLENOL COLD HEAD CONGESTION SEVERE COOL BURST DAYTIME [Suspect]
     Indication: NASOPHARYNGITIS
     Route: 048
  2. COUMADIN [Concomitant]
     Indication: FACTOR V LEIDEN MUTATION
     Dosage: UP TO 10 MG DAILY

REACTIONS (6)
  - ABDOMINAL PAIN UPPER [None]
  - DYSPNOEA [None]
  - INTERNATIONAL NORMALISED RATIO INCREASED [None]
  - PRODUCT QUALITY ISSUE [None]
  - PROTHROMBIN TIME PROLONGED [None]
  - RENAL DISORDER [None]
